FAERS Safety Report 25491811 (Version 1)
Quarter: 2025Q2

REPORT INFORMATION
  Report Type: Spontaneous
  Country: SE (occurrence: SE)
  Receive Date: 20250630
  Receipt Date: 20250630
  Transmission Date: 20250716
  Serious: Yes (Hospitalization, Other)
  Sender: CHEPLAPHARM
  Company Number: None

PATIENT
  Age: 36 Year
  Sex: Male

DRUGS (6)
  1. QUETIAPINE [Suspect]
     Active Substance: QUETIAPINE
     Indication: Suicide attempt
     Dosage: 1500.0MG ONCE/SINGLE ADMINISTRATION;  1 TOTAL??DAILY DOSE: 1500 MILLIGRAM
     Dates: start: 20230909, end: 20230909
  2. LOSARTAN [Suspect]
     Active Substance: LOSARTAN
     Indication: Suicide attempt
     Dosage: 2500.0MG ONCE/SINGLE ADMINISTRATION; 1 TOTAL??DAILY DOSE: 2500 MILLIGRAM
     Dates: start: 20230909, end: 20230909
  3. PROPIOMAZINE [Suspect]
     Active Substance: PROPIOMAZINE
     Indication: Suicide attempt
     Dosage: 500.0MG ONCE/SINGLE ADMINISTRATION;  1 TOTAL??DAILY DOSE: 500 MILLIGRAM
     Dates: start: 20230909, end: 20230909
  4. AMITRIPTYLINE [Suspect]
     Active Substance: AMITRIPTYLINE
     Indication: Suicide attempt
     Dosage: 750.0MG ONCE/SINGLE ADMINISTRATION;  1 TOTAL??DAILY DOSE: 750 MILLIGRAM
     Dates: start: 20230909, end: 20230909
  5. ALCOHOL [Suspect]
     Active Substance: ALCOHOL
     Indication: Suicide attempt
  6. ALCOHOL [Suspect]
     Active Substance: ALCOHOL
     Indication: Alcohol poisoning

REACTIONS (5)
  - Suicide attempt [Recovering/Resolving]
  - Depressed level of consciousness [Recovering/Resolving]
  - Toxicity to various agents [Recovering/Resolving]
  - Sinus tachycardia [Recovering/Resolving]
  - Intentional overdose [Recovering/Resolving]

NARRATIVE: CASE EVENT DATE: 20230909
